FAERS Safety Report 5968011-2 (Version None)
Quarter: 2008Q4

REPORT INFORMATION
  Report Type: 
  Country: None (occurrence: None)
  Receive Date: 20081121
  Receipt Date: 20081110
  Transmission Date: 20090506
  Serious: Yes (Other)
  Sender: FDA-Public Use
  Company Number: 2008US003107

PATIENT
  Age: 33 Year
  Sex: Female

DRUGS (6)
  1. PROGRAF [Suspect]
     Indication: NEPHROPATHY
     Dosage: 4 MG, UID/QD, ORAL, 1 MG, UID/QD; ORAL
     Route: 048
     Dates: start: 20061101, end: 20080801
  2. PROGRAF [Suspect]
     Indication: NEPHROPATHY
     Dosage: 4 MG, UID/QD, ORAL, 1 MG, UID/QD; ORAL
     Route: 048
     Dates: start: 20080801
  3. MYCOPHENOLATE MOFETIL [Concomitant]
  4. CLONIDINE [Concomitant]
  5. VITAMIN E [Concomitant]
  6. OMEPRAZOLE [Concomitant]

REACTIONS (1)
  - CERVICAL DYSPLASIA [None]
